FAERS Safety Report 20819069 (Version 1)
Quarter: 2022Q2

REPORT INFORMATION
  Report Type: Spontaneous
  Country: US (occurrence: US)
  Receive Date: 20220512
  Receipt Date: 20220512
  Transmission Date: 20220721
  Serious: Yes (Other)
  Sender: FDA-Public Use
  Company Number: US-drreddys-LIT/USA/22/0149801

PATIENT
  Sex: Female

DRUGS (4)
  1. MELPHALAN HYDROCHLORIDE [Suspect]
     Active Substance: MELPHALAN HYDROCHLORIDE
     Indication: Prophylaxis
  2. CARMUSTINE [Concomitant]
     Active Substance: CARMUSTINE
     Indication: Prophylaxis
  3. ETOPOSIDE [Concomitant]
     Active Substance: ETOPOSIDE
     Indication: Prophylaxis
  4. CYTARABINE [Concomitant]
     Active Substance: CYTARABINE
     Indication: Prophylaxis

REACTIONS (1)
  - Atrial fibrillation [Unknown]
